FAERS Safety Report 7030780-0 (Version None)
Quarter: 2010Q4

REPORT INFORMATION
  Report Type: 
  Country: None (occurrence: None)
  Receive Date: 20101006
  Receipt Date: 20100924
  Transmission Date: 20110411
  Serious: Yes (Hospitalization, Other)
  Sender: FDA-Public Use
  Company Number: US-SANOFI-AVENTIS-A03200701936

PATIENT
  Age: 72 Year
  Sex: Male
  Weight: 88 kg

DRUGS (42)
  1. CLOPIDOGREL BISULFATE [Suspect]
     Indication: STENT PLACEMENT
     Dosage: UNIT DOSE: 75 MG
     Route: 048
     Dates: start: 20040401, end: 20061003
  2. ASPIRIN [Suspect]
     Indication: STENT PLACEMENT
     Route: 048
     Dates: start: 20040401
  3. KLOR-CON [Concomitant]
     Dates: start: 20040405
  4. LIPITOR [Concomitant]
     Dates: start: 20040413
  5. LIPITOR [Concomitant]
     Dates: start: 19920101
  6. FEXOFENADINE HCL [Concomitant]
     Dates: start: 20040401
  7. ACCOLATE [Concomitant]
     Dates: start: 20040501
  8. FUROSEMIDE [Concomitant]
     Dates: start: 20040501
  9. FUROSEMIDE [Concomitant]
     Dates: start: 19920101
  10. ALBUTEROL [Concomitant]
     Dates: start: 20040501
  11. ACTOS [Concomitant]
     Dates: start: 20040501
  12. TRICOR [Concomitant]
     Dates: start: 20040501
  13. WARFARIN SODIUM [Concomitant]
     Dates: start: 19920101
  14. TOPROL-XL [Concomitant]
     Dates: start: 20040701
  15. TOPROL-XL [Concomitant]
     Dates: start: 20040801
  16. GABAPENTIN [Concomitant]
     Dates: start: 20041101
  17. FLOMAX [Concomitant]
  18. AMOXICILLIN [Concomitant]
     Dates: start: 20051101
  19. LEXAPRO [Concomitant]
     Dates: start: 20051101
  20. LEXAPRO [Concomitant]
     Dates: start: 20070101
  21. FOLIC ACID [Concomitant]
     Dates: start: 20051101
  22. NIFEREX [Concomitant]
     Dates: start: 20051201
  23. NEXIUM [Concomitant]
     Dates: start: 20051201
  24. NEXIUM [Concomitant]
     Dates: start: 20080101
  25. NITROGLYCERIN [Concomitant]
     Dates: start: 20060101
  26. ACETAMINOPHEN WITH PROPOXYPHENE HCL TAB [Concomitant]
     Dosage: 100/650 MG
  27. NITROGLYCERIN [Concomitant]
     Route: 060
  28. NOVOLOG MIX 70/30 [Concomitant]
     Indication: TYPE 2 DIABETES MELLITUS
     Dosage: AS DIRECTED
  29. FLOMAX [Concomitant]
     Route: 048
  30. QUININE [Concomitant]
  31. VALIUM [Concomitant]
  32. RHINOCORT [Concomitant]
     Dosage: 1 PUFF TO EACH NOSTRIL EVERY DAY DOSE:1 PUFF(S)
     Route: 045
  33. NAPROXEN [Concomitant]
     Route: 065
  34. VIAGRA [Concomitant]
     Route: 065
     Dates: start: 19960101, end: 19990101
  35. CYMBALTA [Concomitant]
     Dates: start: 20080101
  36. PROGLYCEM [Concomitant]
  37. GLEEVEC [Concomitant]
  38. AVANDIA [Concomitant]
  39. FLUINDIONE [Concomitant]
  40. GLUCOSAMINE [Concomitant]
  41. COLCHICINE [Concomitant]
  42. ARANESP [Concomitant]

REACTIONS (11)
  - ANAEMIA [None]
  - ASTHENIA [None]
  - BLOODY DISCHARGE [None]
  - CARDIAC FAILURE CONGESTIVE [None]
  - CONTUSION [None]
  - DIARRHOEA [None]
  - FATIGUE [None]
  - GASTROINTESTINAL HAEMORRHAGE [None]
  - MELAENA [None]
  - SINUSITIS [None]
  - SYNCOPE [None]
